FAERS Safety Report 7821490-8 (Version None)
Quarter: 2011Q4

REPORT INFORMATION
  Report Type: 
  Country: None (occurrence: None)
  Receive Date: 20111018
  Receipt Date: 20111010
  Transmission Date: 20120403
  Serious: Yes (Hospitalization, Other)
  Sender: FDA-Public Use
  Company Number: PHHY2011AT89650

PATIENT
  Age: 23 Year
  Sex: Male

DRUGS (3)
  1. FLUOXETINE [Suspect]
     Dosage: 80 MG, UNK
     Dates: start: 20100101, end: 20110516
  2. WELLBATRIN [Interacting]
     Indication: ATTENTION DEFICIT/HYPERACTIVITY DISORDER
     Dosage: 150 MG, UNK
     Dates: start: 20110411, end: 20110509
  3. WELLBATRIN [Interacting]
     Dosage: 300 MG, UNK
     Dates: start: 20110510, end: 20110516

REACTIONS (9)
  - DRUG INTERACTION [None]
  - FALL [None]
  - TREMOR [None]
  - MUSCLE SPASMS [None]
  - FOAMING AT MOUTH [None]
  - GAZE PALSY [None]
  - EPILEPSY [None]
  - UNRESPONSIVE TO STIMULI [None]
  - CONVULSION [None]
